FAERS Safety Report 19772006 (Version 1)
Quarter: 2021Q3

REPORT INFORMATION
  Report Type: Spontaneous
  Country: US (occurrence: US)
  Receive Date: 20210827
  Receipt Date: 20210827
  Transmission Date: 20211014
  Serious: Yes (Hospitalization)
  Sender: FDA-Public Use
  Company Number: None

PATIENT
  Age: 75 Year
  Sex: Female

DRUGS (17)
  1. METAMUCIL [Concomitant]
     Active Substance: PLANTAGO SEED
  2. VOLTAREN GOP GEL [Concomitant]
  3. ALVESCO HFA [Concomitant]
  4. OPSUMIT [Suspect]
     Active Substance: MACITENTAN
     Indication: PULMONARY HYPERTENSION
     Route: 048
     Dates: start: 20191223
  5. SILDENAFIL. [Concomitant]
     Active Substance: SILDENAFIL
  6. ATORVASTATIN [Concomitant]
     Active Substance: ATORVASTATIN
  7. TYLENOL [Concomitant]
     Active Substance: ACETAMINOPHEN
  8. OMEPRAZOLE. [Concomitant]
     Active Substance: OMEPRAZOLE
  9. MYCOPHENOLATE [Concomitant]
     Active Substance: MYCOPHENOLIC ACID
  10. FUROSEMIDE. [Concomitant]
     Active Substance: FUROSEMIDE
  11. MVI [Concomitant]
     Active Substance: VITAMINS
  12. CITRACAL [Concomitant]
     Active Substance: CALCIUM CITRATE
  13. ALBUTEROL HFA [Concomitant]
     Active Substance: ALBUTEROL SULFATE
  14. CULTURELLE [Concomitant]
     Active Substance: LACTOBACILLUS RHAMNOSUS
  15. ASPIRIN. [Concomitant]
     Active Substance: ASPIRIN
  16. POTASSIUM CHLORIDE. [Concomitant]
     Active Substance: POTASSIUM CHLORIDE
  17. METOPROLOL. [Concomitant]
     Active Substance: METOPROLOL

REACTIONS (1)
  - Dysphagia [None]

NARRATIVE: CASE EVENT DATE: 20210817
